FAERS Safety Report 6808776-0 (Version None)
Quarter: 2010Q2

REPORT INFORMATION
  Report Type: 
  Country: None (occurrence: None)
  Receive Date: 20100630
  Receipt Date: 20090928
  Transmission Date: 20101027
  Serious: No
  Sender: FDA-Public Use
  Company Number: US-PFIZER INC-2009255659

PATIENT

DRUGS (3)
  1. ZYVOX [Suspect]
     Indication: PNEUMONIA
     Dates: start: 20090101, end: 20090101
  2. CASPOFUNGIN [Suspect]
     Dates: end: 20090101
  3. CEFEPIME [Suspect]
     Dates: end: 20090101

REACTIONS (2)
  - PYREXIA [None]
  - RASH [None]
